FAERS Safety Report 9652019 (Version 1)
Quarter: 2013Q4

REPORT INFORMATION
  Report Type: Spontaneous
  Country: US (occurrence: None)
  Receive Date: 20131025
  Receipt Date: 20131025
  Transmission Date: 20140711
  Serious: Yes (Life-Threatening)
  Sender: FDA-Public Use
  Company Number: None

PATIENT
  Age: 52 Year
  Sex: Male
  Weight: 129.3 kg

DRUGS (1)
  1. METOPROLOL [Suspect]
     Indication: HEART RATE INCREASED
     Route: 048
     Dates: start: 20130828, end: 20130918

REACTIONS (1)
  - Suicidal ideation [None]
